FAERS Safety Report 20691725 (Version 3)
Quarter: 2023Q2

REPORT INFORMATION
  Report Type: Spontaneous
  Country: US (occurrence: US)
  Receive Date: 20220408
  Receipt Date: 20230515
  Transmission Date: 20230721
  Serious: Yes (Death, Life-Threatening, Hospitalization, Other)
  Sender: FDA-Public Use
  Company Number: US-PFIZER INC-202200532693

PATIENT
  Age: 81 Year
  Sex: Female
  Weight: 72.57 kg

DRUGS (3)
  1. VYNDAMAX [Suspect]
     Active Substance: TAFAMIDIS
     Indication: Cardiac disorder
     Dosage: 61 MG, 1X/DAY (ONCE A DAY, EVERY MORNING)
     Dates: end: 20220406
  2. WARFARIN [Concomitant]
     Active Substance: WARFARIN
     Dosage: 5 MG (5MG FOR 6 DAYS A WEEK)
  3. WARFARIN [Concomitant]
     Active Substance: WARFARIN
     Dosage: 2.5 MG (2.5MG ONE DAY A  WEEK)

REACTIONS (5)
  - Death [Fatal]
  - Internal haemorrhage [Unknown]
  - Haemorrhage [Unknown]
  - Dementia [Unknown]
  - Off label use [Unknown]

NARRATIVE: CASE EVENT DATE: 20220101
